FAERS Safety Report 5563689-X (Version None)
Quarter: 2007Q4

REPORT INFORMATION
  Report Type: 
  Country: None (occurrence: None)
  Receive Date: 20071217
  Receipt Date: 20070726
  Transmission Date: 20080405
  Serious: No
  Sender: FDA-Public Use
  Company Number: US-ASTRAZENECA-2007UW18167

PATIENT
  Age: 76 Year
  Sex: Female
  Weight: 71.7 kg

DRUGS (3)
  1. CRESTOR [Suspect]
     Indication: CAROTID ARTERY DISEASE
     Route: 048
     Dates: start: 20070712
  2. CRESTOR [Suspect]
     Indication: BLOOD CHOLESTEROL
     Route: 048
     Dates: start: 20070712
  3. PREDNISONE [Concomitant]
     Indication: ASTHMA

REACTIONS (3)
  - DIZZINESS [None]
  - INSOMNIA [None]
  - VISION BLURRED [None]
